FAERS Safety Report 16876748 (Version 2)
Quarter: 2019Q4

REPORT INFORMATION
  Report Type: Spontaneous
  Country: SE (occurrence: SE)
  Receive Date: 20191002
  Receipt Date: 20191221
  Transmission Date: 20200122
  Serious: Yes (Disabling)
  Sender: FDA-Public Use
  Company Number: SE-ACCORD-156235

PATIENT
  Age: 66 Year
  Sex: Male

DRUGS (3)
  1. BETOLVEX [Concomitant]
     Active Substance: CYANOCOBALAMIN
     Dosage: 1 MG, QD
  2. ATORVASTATIN/ATORVASTATIN CALCIUM [Suspect]
     Active Substance: ATORVASTATIN CALCIUM
     Indication: HYPERLIPIDAEMIA
     Dosage: 40 MG 1X1
     Route: 048
     Dates: start: 20161001, end: 20190701
  3. JANUMET [Concomitant]
     Active Substance: METFORMIN HYDROCHLORIDE\SITAGLIPTIN PHOSPHATE
     Dosage: 50NG/1000MG

REACTIONS (1)
  - Necrotising myositis [Not Recovered/Not Resolved]

NARRATIVE: CASE EVENT DATE: 20181125
